FAERS Safety Report 8773684 (Version 2)
Quarter: 2013Q1

REPORT INFORMATION
  Report Type: Report from Study
  Country: JP (occurrence: JP)
  Receive Date: 20120907
  Receipt Date: 20130311
  Transmission Date: 20140127
  Serious: Yes (Other)
  Sender: FDA-Public Use
  Company Number: JP-VERTEX PHARMACEUTICAL INC.-2012-020571

PATIENT
  Age: 65 Year
  Sex: Male

DRUGS (14)
  1. VX-950 (TELAPREVIR) [Suspect]
     Indication: CHRONIC HEPATITIS C
     Dosage: 1500 MG, QD
     Route: 048
     Dates: start: 20120704, end: 20120705
  2. VX-950 (TELAPREVIR) [Suspect]
     Dosage: 1000 MG, QD
     Route: 048
     Dates: start: 20120706
  3. VX-950 (TELAPREVIR) [Suspect]
     Dosage: 500 MG, QD
     Route: 048
     Dates: start: 20120801, end: 20120916
  4. VX-950 (TELAPREVIR) [Suspect]
     Dosage: 1000 MG, QD
     Dates: start: 20120917, end: 20120925
  5. RIBAVIRIN [Concomitant]
     Dosage: 200 MG, QD
     Route: 048
  6. PEGINTERFERON ALFA-2B [Concomitant]
     Dosage: 0.6 ?G/KG, WEEK
     Route: 058
  7. NEO-MINOPHAGEN C [Concomitant]
     Dosage: 40 ML, QD
     Route: 042
  8. ARGAMATE [Concomitant]
     Dosage: 75 G, QD
     Route: 048
  9. ALDACTONE A [Concomitant]
     Dosage: 50 MG, QD
     Route: 048
  10. TENORMIN [Concomitant]
     Dosage: 25 MG, QD
     Route: 048
  11. NU-LOTAN [Concomitant]
     Dosage: 25 MG, QD
     Route: 048
  12. BAYASPIRIN [Concomitant]
     Dosage: 100 MG, QD
     Route: 048
     Dates: end: 20120827
  13. NEORAL [Concomitant]
     Dosage: 20 MG, QD
     Route: 048
  14. MEDROL [Concomitant]
     Dosage: 2 MG, QD
     Route: 048
     Dates: start: 20120807

REACTIONS (3)
  - Rash [Recovered/Resolved]
  - Haemoglobin decreased [Unknown]
  - Off label use [Unknown]
